FAERS Safety Report 6994439-8 (Version None)
Quarter: 2010Q3

REPORT INFORMATION
  Report Type: 
  Country: None (occurrence: None)
  Receive Date: 20100917
  Receipt Date: 20100909
  Transmission Date: 20110219
  Serious: Yes (Hospitalization, Other)
  Sender: FDA-Public Use
  Company Number: US-JNJFOC-20100903336

PATIENT
  Sex: Male
  Weight: 59.88 kg

DRUGS (5)
  1. FENTANYL CITRATE [Suspect]
     Indication: PAIN
     Route: 062
  2. FENTANYL TRANSEDERMAL SYSTEM [Suspect]
     Indication: PAIN
     Route: 062
  3. FENTANYL TRANSEDERMAL SYSTEM [Suspect]
     Route: 062
  4. DILAUDID [Suspect]
     Indication: BREAKTHROUGH PAIN
     Dosage: 1 OR 2 TABLETS EVERY 4-6 HOURS AS NEEDED
     Route: 048
  5. COUMADIN [Concomitant]
     Indication: ANTICOAGULANT THERAPY
     Route: 048

REACTIONS (3)
  - ABDOMINAL NEOPLASM [None]
  - PAIN [None]
  - TREATMENT NONCOMPLIANCE [None]
